FAERS Safety Report 4907998-3 (Version None)
Quarter: 2006Q1

REPORT INFORMATION
  Report Type: 
  Country: None (occurrence: None)
  Receive Date: 20060210
  Receipt Date: 20060206
  Transmission Date: 20060701
  Serious: Yes (Other)
  Sender: FDA-Public Use
  Company Number: US-GLAXOSMITHKLINE-A0592513A

PATIENT
  Sex: Female

DRUGS (3)
  1. VALTREX [Suspect]
     Dosage: 500MG SEE DOSAGE TEXT
  2. TYLENOL (CAPLET) [Concomitant]
  3. IBUPROFEN [Concomitant]

REACTIONS (2)
  - DEAFNESS NEUROSENSORY [None]
  - DRUG EXPOSURE DURING PREGNANCY [None]
